FAERS Safety Report 18855659 (Version 2)
Quarter: 2021Q1

REPORT INFORMATION
  Report Type: Spontaneous
  Country: BR (occurrence: BR)
  Receive Date: 20210205
  Receipt Date: 20210218
  Transmission Date: 20210420
  Serious: Yes (Death, Life-Threatening, Other)
  Sender: FDA-Public Use
  Company Number: BR-GE HEALTHCARE LIFE SCIENCES-2021CSU000572

PATIENT

DRUGS (4)
  1. LOSARTAN. [Concomitant]
     Active Substance: LOSARTAN
     Indication: HYPERTENSION
     Dosage: 50 MG
     Route: 048
  2. OMNIPAQUE [Suspect]
     Active Substance: IOHEXOL
     Indication: COMPUTERISED TOMOGRAM THORAX
     Dosage: 90 ML, SINGLE
     Route: 042
     Dates: start: 20210125, end: 20210125
  3. OMNIPAQUE [Suspect]
     Active Substance: IOHEXOL
     Indication: PLEURAL EFFUSION
  4. FUROSEMIDE. [Concomitant]
     Active Substance: FUROSEMIDE
     Indication: PLEURAL EFFUSION
     Dosage: 20 MG
     Route: 048

REACTIONS (12)
  - Dyspnoea [Fatal]
  - Heart rate decreased [Unknown]
  - Malaise [Unknown]
  - Oxygen saturation decreased [Unknown]
  - Fatigue [Unknown]
  - Pallor [Fatal]
  - Respiratory rate increased [Unknown]
  - Confusional state [Unknown]
  - Blood pressure immeasurable [Unknown]
  - Agitation [Unknown]
  - Hyperhidrosis [Fatal]
  - Pulse absent [Unknown]

NARRATIVE: CASE EVENT DATE: 20210125
